FAERS Safety Report 12948579 (Version 7)
Quarter: 2019Q3

REPORT INFORMATION
  Report Type: Spontaneous
  Country: US (occurrence: US)
  Receive Date: 20161117
  Receipt Date: 20190710
  Transmission Date: 20191004
  Serious: Yes (Other)
  Sender: FDA-Public Use
  Company Number: US-PFIZER INC-2016524135

PATIENT
  Age: 32 Year
  Sex: Female
  Weight: 83 kg

DRUGS (3)
  1. REVATIO [Suspect]
     Active Substance: SILDENAFIL CITRATE
     Dosage: 1 DF, UNK (SHE WAS TAKING 1 PILL)
  2. REVATIO [Suspect]
     Active Substance: SILDENAFIL CITRATE
     Dosage: 4 DF, UNK (TAKING 4 TABLETS 3 TIMES A DAY)
  3. REVATIO [Suspect]
     Active Substance: SILDENAFIL CITRATE
     Indication: CARDIAC DISORDER
     Dosage: 80 MG, 3X/DAY
     Dates: start: 20101213, end: 201611

REACTIONS (17)
  - Heart injury [Unknown]
  - Chest pain [Unknown]
  - Asthenia [Not Recovered/Not Resolved]
  - Mobility decreased [Not Recovered/Not Resolved]
  - Flatulence [Unknown]
  - Product use in unapproved indication [Unknown]
  - Product use issue [Unknown]
  - Movement disorder [Not Recovered/Not Resolved]
  - Nausea [Recovering/Resolving]
  - Fatigue [Unknown]
  - Dyspnoea [Unknown]
  - Malaise [Unknown]
  - Decreased appetite [Not Recovered/Not Resolved]
  - Weight increased [Unknown]
  - Off label use [Unknown]
  - Food poisoning [Unknown]
  - Abdominal discomfort [Unknown]

NARRATIVE: CASE EVENT DATE: 20101213
